FAERS Safety Report 10669282 (Version 6)
Quarter: 2015Q2

REPORT INFORMATION
  Report Type: Report from Study
  Country: GR (occurrence: GR)
  Receive Date: 20141222
  Receipt Date: 20150616
  Transmission Date: 20150821
  Serious: Yes (Hospitalization)
  Sender: FDA-Public Use
  Company Number: GR-SA-2014SA170961

PATIENT
  Age: 50 Year
  Sex: Female
  Weight: 77 kg

DRUGS (19)
  1. AFLIBERCEPT [Suspect]
     Active Substance: AFLIBERCEPT
     Indication: COLORECTAL CANCER METASTATIC
     Route: 041
     Dates: start: 20140610, end: 20140610
  2. IRINOTECAN [Suspect]
     Active Substance: IRINOTECAN
     Indication: COLORECTAL CANCER METASTATIC
     Route: 041
     Dates: start: 20141124, end: 20141124
  3. 5 FU [Suspect]
     Active Substance: FLUOROURACIL
     Indication: COLORECTAL CANCER METASTATIC
     Route: 041
     Dates: start: 20140610
  4. IRBESARTAN HYDROCHLOROTHIAZIDE ZENTIVA [Concomitant]
     Active Substance: HYDROCHLOROTHIAZIDE\IRBESARTAN
     Indication: HYPERTENSION
     Route: 048
     Dates: start: 20140901, end: 20141205
  5. DEPON [Concomitant]
     Active Substance: ACETAMINOPHEN
     Indication: TOOTH INFECTION
     Dates: start: 20141111, end: 20141123
  6. LEUCOVORIN [Suspect]
     Active Substance: LEUCOVORIN
     Indication: COLORECTAL CANCER METASTATIC
     Route: 041
     Dates: start: 20140610, end: 20140610
  7. LEUCOVORIN [Suspect]
     Active Substance: LEUCOVORIN
     Indication: COLORECTAL CANCER METASTATIC
     Route: 041
     Dates: start: 20141124, end: 20141124
  8. 5 FU [Suspect]
     Active Substance: FLUOROURACIL
     Indication: COLORECTAL CANCER METASTATIC
     Route: 040
     Dates: start: 20140610, end: 20140610
  9. DEXAMETHASONE. [Concomitant]
     Active Substance: DEXAMETHASONE
     Dosage: I1 IN 15 DAYS
     Route: 042
     Dates: start: 20140610, end: 20141124
  10. FENISTIL [Concomitant]
     Active Substance: DIMETHINDENE
     Dosage: 1 IN 15 DAYS
     Route: 042
     Dates: start: 20140610, end: 20141124
  11. IRBESARTAN HYDROCHLOROTHIAZIDE ZENTIVA [Concomitant]
     Active Substance: HYDROCHLOROTHIAZIDE\IRBESARTAN
     Indication: HYPERTENSION
     Dosage: 150 +12.5 MG
     Route: 048
     Dates: start: 20141229, end: 20150202
  12. 5 FU [Suspect]
     Active Substance: FLUOROURACIL
     Indication: COLORECTAL CANCER METASTATIC
     Route: 041
     Dates: start: 20141124, end: 20141125
  13. ATROPINE [Concomitant]
     Active Substance: ATROPINE
     Dosage: 1 IN 15 DAYS
     Route: 042
     Dates: start: 20140610, end: 20141124
  14. ZINADOL [Concomitant]
     Active Substance: CEFUROXIME AXETIL
     Indication: TOOTH INFECTION
     Dates: start: 20141117, end: 20141123
  15. AFLIBERCEPT [Suspect]
     Active Substance: AFLIBERCEPT
     Indication: COLORECTAL CANCER METASTATIC
     Route: 041
     Dates: start: 20141124, end: 20141124
  16. ZOFRAN [Concomitant]
     Active Substance: ONDANSETRON HYDROCHLORIDE
     Dosage: 8 MG IN 15 DAYS
     Route: 042
     Dates: start: 20140610, end: 20141124
  17. ZANTAC [Concomitant]
     Active Substance: RANITIDINE HYDROCHLORIDE
     Dosage: 1 IN 15 DAYS
     Route: 042
     Dates: start: 20140610, end: 20141124
  18. IRINOTECAN [Suspect]
     Active Substance: IRINOTECAN
     Indication: COLORECTAL CANCER METASTATIC
     Route: 041
     Dates: start: 20140610, end: 20140610
  19. 5 FU [Suspect]
     Active Substance: FLUOROURACIL
     Indication: COLORECTAL CANCER METASTATIC
     Route: 040
     Dates: start: 20141124, end: 20141124

REACTIONS (3)
  - Dysphagia [Recovered/Resolved]
  - Hypertension [Recovered/Resolved]
  - Dysphonia [Not Recovered/Not Resolved]

NARRATIVE: CASE EVENT DATE: 20141205
